FAERS Safety Report 8514156-2 (Version None)
Quarter: 2012Q2

REPORT INFORMATION
  Report Type: 
  Country: None (occurrence: None)
  Receive Date: 20120406
  Receipt Date: 20120201
  Transmission Date: 20120825
  Serious: Yes (Hospitalization)
  Sender: FDA-Public Use
  Company Number: US-CYPR-2011-000091

PATIENT
  Sex: Female
  Weight: 65 kg

DRUGS (10)
  1. GLIMEPIRIDE [Concomitant]
  2. CYPHER STENT [Concomitant]
  3. NITROSTAT [Concomitant]
  4. PRAVASTATIN [Concomitant]
  5. CLOPIDOGREL [Suspect]
     Indication: ANTIPLATELET THERAPY
     Dosage: (75 MG ORAL) ; (75 MG ORAL)
     Route: 048
     Dates: start: 20110511, end: 20111221
  6. CLOPIDOGREL [Suspect]
     Indication: ANTIPLATELET THERAPY
     Dosage: (75 MG ORAL) ; (75 MG ORAL)
     Route: 048
     Dates: start: 20111225
  7. ASPIRIN [Suspect]
     Indication: CORONARY ARTERY DISEASE
     Dosage: (325 MG ORAL) ; (325 MG ORAL)
     Route: 048
     Dates: start: 20100417, end: 20111221
  8. ASPIRIN [Suspect]
     Indication: CORONARY ARTERY DISEASE
     Dosage: (325 MG ORAL) ; (325 MG ORAL)
     Route: 048
     Dates: start: 20111225
  9. GLIPIZIDE [Concomitant]
  10. LISINOPRIL [Concomitant]

REACTIONS (1)
  - KIDNEY INFECTION [None]
